FAERS Safety Report 6509988-6 (Version None)
Quarter: 2009Q4

REPORT INFORMATION
  Report Type: 
  Country: None (occurrence: None)
  Receive Date: 20091222
  Receipt Date: 20091221
  Transmission Date: 20100525
  Serious: Yes (Hospitalization)
  Sender: FDA-Public Use
  Company Number: PHHO2004RU02268

PATIENT
  Sex: Male
  Weight: 67.7 kg

DRUGS (12)
  1. STARLIX [Suspect]
     Dosage: LEVEL 1
     Route: 048
     Dates: start: 20030409
  2. STARLIX [Suspect]
     Dosage: LEVEL 2
     Route: 048
  3. PLACEBO PLACEBO [Suspect]
     Indication: CARDIOVASCULAR DISORDER
     Dosage: LEVEL 1
     Route: 048
     Dates: start: 20030409
  4. PLACEBO PLACEBO [Suspect]
     Dosage: LEVEL 2
     Route: 048
     Dates: end: 20030507
  5. PLACEBO PLACEBO [Suspect]
     Dosage: NO TREATMENT
     Dates: start: 20030508, end: 20030514
  6. PLACEBO PLACEBO [Suspect]
     Dosage: LEVEL 2
     Route: 048
     Dates: start: 20030515
  7. PLACEBO PLACEBO [Suspect]
     Dosage: NO TREATMENT
  8. PLACEBO PLACEBO [Suspect]
     Dosage: LEVEL 2
     Route: 048
     Dates: end: 20031008
  9. PLACEBO PLACEBO [Suspect]
     Dosage: NO TREATMENT
     Dates: start: 20031009, end: 20031116
  10. PLACEBO PLACEBO [Suspect]
     Dosage: LEVEL 1
     Route: 048
     Dates: start: 20031117, end: 20031211
  11. PLACEBO PLACEBO [Suspect]
     Dosage: NO TREATMENT
     Dates: start: 20031212, end: 20040109
  12. PLACEBO PLACEBO [Suspect]
     Dosage: LEVEL 1
     Route: 048
     Dates: start: 20040110, end: 20040125

REACTIONS (7)
  - BASAL CELL CARCINOMA [None]
  - DERMATITIS [None]
  - ECZEMA [None]
  - PRURITUS [None]
  - SECRETION DISCHARGE [None]
  - SKIN EXFOLIATION [None]
  - SKIN NEOPLASM EXCISION [None]
